FAERS Safety Report 26062459 (Version 1)
Quarter: 2025Q4

REPORT INFORMATION
  Report Type: Report from Study
  Country: PK (occurrence: PK)
  Receive Date: 20251119
  Receipt Date: 20251119
  Transmission Date: 20260117
  Serious: Yes (Other)
  Sender: ROCHE
  Company Number: PK-ROCHE-10000433685

PATIENT
  Age: 45 Year
  Sex: Female

DRUGS (1)
  1. TECENTRIQ [Suspect]
     Active Substance: ATEZOLIZUMAB
     Indication: Non-small cell lung cancer
     Dosage: INTERVAL 3 WEEK?RECEIVED SIX CYCLES OF IMMUNOTHERAPY?UNTIL 06-OCT-2025
     Route: 042
     Dates: start: 20250409

REACTIONS (2)
  - Lymphadenopathy [Not Recovered/Not Resolved]
  - Abdominal discomfort [Not Recovered/Not Resolved]

NARRATIVE: CASE EVENT DATE: 20251010
